FAERS Safety Report 10581731 (Version 1)
Quarter: 2014Q4

REPORT INFORMATION
  Report Type: Spontaneous
  Country: DE (occurrence: DE)
  Receive Date: 20141113
  Receipt Date: 20141113
  Transmission Date: 20150529
  Serious: Yes (Other)
  Sender: FDA-Public Use
  Company Number: GXKR2014DE004163

PATIENT

DRUGS (7)
  1. KOKAIN [Concomitant]
     Indication: SUBSTANCE ABUSER
     Dosage: 250 [MG/D ]
     Route: 064
  2. CLOMIPRAMINE [Suspect]
     Active Substance: CLOMIPRAMINE
     Indication: DEPRESSION
     Dosage: 25 MG/D UP TO 150 MG/D (AS NEEDED) ]/ NOT TAKEN BETWEEN WEEK 8 AND 20.
     Route: 064
     Dates: start: 20130522, end: 20140221
  3. CARBAMAZEPIN [Concomitant]
     Active Substance: CARBAMAZEPINE
     Indication: DEPRESSION
     Dosage: 200 [MG/D ]
     Route: 064
     Dates: start: 20130522, end: 20130711
  4. L-THYROXINE//LEVOTHYROXINE [Concomitant]
     Indication: AUTOIMMUNE THYROIDITIS
     Dosage: 75 [?G/D ]
     Route: 064
     Dates: start: 20130522, end: 20140221
  5. FOLIO                              /00349401/ [Concomitant]
     Indication: PROPHYLAXIS OF NEURAL TUBE DEFECT
     Dosage: 0.4 [MG/D ]
     Route: 064
     Dates: start: 20130711, end: 20140221
  6. ASPIRIN. [Concomitant]
     Active Substance: ASPIRIN
     Indication: URINARY TRACT INFECTION
     Route: 064
  7. MAXIM                              /01257001/ [Concomitant]
     Indication: ORAL CONTRACEPTION
     Dosage: 0.03 [MG/D ] / 2 [MG/D ]
     Route: 064
     Dates: start: 20130522, end: 20130708

REACTIONS (6)
  - Patent ductus arteriosus [Not Recovered/Not Resolved]
  - Tremor [Recovered/Resolved]
  - Foot deformity [Unknown]
  - Pulmonary artery stenosis [Recovered/Resolved]
  - Respiratory disorder neonatal [Recovered/Resolved]
  - Atrial septal defect [Not Recovered/Not Resolved]

NARRATIVE: CASE EVENT DATE: 20140221
